FAERS Safety Report 9501793 (Version 1)
Quarter: 2013Q3

REPORT INFORMATION
  Report Type: Spontaneous
  Country: US (occurrence: US)
  Receive Date: 20130905
  Receipt Date: 20130905
  Transmission Date: 20140515
  Serious: No
  Sender: FDA-Public Use
  Company Number: US-PFIZER INC-2013256092

PATIENT
  Age: 51 Year
  Sex: Female
  Weight: 91.61 kg

DRUGS (2)
  1. LYRICA [Suspect]
     Indication: DIABETIC NEUROPATHY
     Dosage: 50 MG, 3X/DAY
     Route: 048
     Dates: start: 20130902
  2. DILAUDID [Suspect]
     Indication: PAIN
     Dosage: 2 MG, 1X/DAY
     Route: 048
     Dates: start: 20130824

REACTIONS (1)
  - Dizziness [Recovered/Resolved]
